FAERS Safety Report 25317783 (Version 1)
Quarter: 2025Q2

REPORT INFORMATION
  Report Type: Spontaneous
  Country: JP (occurrence: None)
  Receive Date: 20250515
  Receipt Date: 20250515
  Transmission Date: 20250717
  Serious: Yes (Hospitalization)
  Sender: UMEDICA LABS
  Company Number: JP-Umedica-000660

PATIENT
  Age: 74 Year
  Sex: Male

DRUGS (5)
  1. OLMESARTAN MEDOXOMIL [Suspect]
     Active Substance: OLMESARTAN MEDOXOMIL
     Indication: Hypertension
     Dosage: USED FOR 13 YEARS
  2. MIGLITOL [Concomitant]
     Active Substance: MIGLITOL
     Dosage: USED FOR 8 YEARS
  3. DAPAGLIFLOZIN [Concomitant]
     Active Substance: DAPAGLIFLOZIN
     Dosage: USED FOR 6 YEARS
  4. SENNOSIDES [Concomitant]
     Active Substance: SENNOSIDES
     Dosage: USED FOR 2 MONTHS
  5. OLMESARTAN MEDOXOMIL [Suspect]
     Active Substance: OLMESARTAN MEDOXOMIL
     Indication: Hypertension

REACTIONS (5)
  - Gastritis [Recovering/Resolving]
  - Haematemesis [Unknown]
  - Melaena [Unknown]
  - Mucosal atrophy [Unknown]
  - Gastrointestinal haemorrhage [Recovered/Resolved]
